FAERS Safety Report 5087325-4 (Version None)
Quarter: 2006Q3

REPORT INFORMATION
  Report Type: 
  Country: None (occurrence: None)
  Receive Date: 20060824
  Receipt Date: 20040721
  Transmission Date: 20061208
  Serious: Yes (Hospitalization)
  Sender: FDA-Public Use
  Company Number: JP-ABBOTT-04P-087-0267972-00

PATIENT
  Sex: Female

DRUGS (18)
  1. KALETRA [Suspect]
     Indication: HIV INFECTION
     Route: 048
     Dates: start: 20021005, end: 20050929
  2. NORVIR [Suspect]
     Indication: HIV INFECTION
     Route: 048
     Dates: start: 20050930, end: 20060111
  3. NORVIR [Suspect]
     Route: 048
     Dates: start: 20060126
  4. LAMIVUDINE [Suspect]
     Indication: HIV INFECTION
     Route: 048
     Dates: start: 20021005, end: 20050929
  5. LAMIVUDINE [Suspect]
     Route: 048
     Dates: start: 20060112
  6. STAVUDINE [Suspect]
     Indication: HIV INFECTION
     Route: 048
     Dates: start: 20021005, end: 20040219
  7. EMTRICITABIN/TENOFOVIR [Suspect]
     Indication: HIV INFECTION
     Route: 048
     Dates: start: 20050930, end: 20060111
  8. ATAZANAVIR [Suspect]
     Indication: HIV INFECTION
     Route: 048
     Dates: start: 20050930, end: 20060111
  9. SAQUINAVIR [Suspect]
     Indication: HIV INFECTION
     Route: 048
     Dates: start: 20060126
  10. NELFINAVIR [Suspect]
     Indication: HIV INFECTION
     Route: 048
     Dates: start: 20060112, end: 20060122
  11. ZIDOVUDINE [Suspect]
     Indication: HIV INFECTION
     Route: 048
     Dates: start: 20040220, end: 20050929
  12. ZIDOVUDINE [Suspect]
     Route: 048
     Dates: start: 20060112
  13. QUETIAPINE FUMARATE [Concomitant]
     Indication: ENCEPHALOPATHY
     Route: 048
     Dates: start: 20021005, end: 20030319
  14. QUETIAPINE FUMARATE [Concomitant]
     Route: 048
     Dates: start: 20021014, end: 20040125
  15. QUETIAPINE FUMARATE [Concomitant]
     Route: 048
     Dates: start: 20040126
  16. LORMETAZEPAM [Concomitant]
     Indication: ENCEPHALOPATHY
     Route: 048
     Dates: start: 20021005, end: 20030319
  17. LORAZEPAM [Concomitant]
     Indication: ENCEPHALOPATHY
     Route: 048
     Dates: start: 20021014, end: 20021202
  18. BACTRIM [Concomitant]
     Indication: ANTIBIOTIC PROPHYLAXIS
     Route: 048
     Dates: start: 20021014

REACTIONS (4)
  - ATYPICAL MYCOBACTERIAL INFECTION [None]
  - HERPES ZOSTER [None]
  - HYPERLIPIDAEMIA [None]
  - LIPOATROPHY [None]
